FAERS Safety Report 8339868-5 (Version None)
Quarter: 2012Q2

REPORT INFORMATION
  Report Type: 
  Country: None (occurrence: None)
  Receive Date: 20120507
  Receipt Date: 20120501
  Transmission Date: 20120825
  Serious: Yes (Other)
  Sender: FDA-Public Use
  Company Number: US-PFIZER INC-2012107086

PATIENT
  Sex: Female

DRUGS (5)
  1. PRISTIQ [Suspect]
     Dosage: 50 MG, UNK
  2. VALIUM [Concomitant]
     Dosage: UNK
  3. MORPHINE [Concomitant]
     Dosage: UNK
  4. SYNTHROID [Concomitant]
     Dosage: UNK
  5. VICODIN [Concomitant]
     Dosage: UNK

REACTIONS (4)
  - THERAPEUTIC RESPONSE UNEXPECTED [None]
  - DRUG INTOLERANCE [None]
  - SOMNOLENCE [None]
  - LOSS OF CONSCIOUSNESS [None]
